FAERS Safety Report 5892293-9 (Version None)
Quarter: 2008Q3

REPORT INFORMATION
  Report Type: 
  Country: None (occurrence: None)
  Receive Date: 20080919
  Receipt Date: 20080908
  Transmission Date: 20090109
  Serious: Yes (Death)
  Sender: FDA-Public Use
  Company Number: 08-041

PATIENT
  Age: 61 Year
  Sex: Male

DRUGS (9)
  1. CEFEPIME [Suspect]
     Indication: ESCHERICHIA BACTERAEMIA
  2. TACROLIMUS [Suspect]
     Indication: IMMUNOSUPPRESSION
  3. MYCOPHENOLATE MOFETIL [Suspect]
     Indication: IMMUNOSUPPRESSION
  4. PREDNISONE [Suspect]
     Indication: IMMUNOSUPPRESSION
  5. MICAFUNGIN [Suspect]
     Indication: ANTIFUNGAL PROPHYLAXIS
     Dosage: 100 MG DAILY, INTRAVENOUSLY
     Route: 042
  6. TRIMETHOPRIM + SULFAMETHOXAZOLE [Suspect]
     Indication: ANTIFUNGAL PROPHYLAXIS
  7. DAPTOMYCIN [Suspect]
     Indication: BACTERAEMIA
  8. GANCICLOVIR [Suspect]
     Indication: CYTOMEGALOVIRUS VIRAEMIA
  9. MEROPENEM [Suspect]
     Indication: ESCHERICHIA BACTERAEMIA

REACTIONS (18)
  - ABDOMINAL DISTENSION [None]
  - ASCITES [None]
  - BILIRUBIN CONJUGATED INCREASED [None]
  - BLOOD BILIRUBIN INCREASED [None]
  - BLOOD CULTURE POSITIVE [None]
  - CATHETER RELATED INFECTION [None]
  - CYTOMEGALOVIRUS VIRAEMIA [None]
  - DERMATITIS BULLOUS [None]
  - ECCHYMOSIS [None]
  - ENTEROCOCCAL INFECTION [None]
  - ESCHERICHIA BACTERAEMIA [None]
  - FUNGAL INFECTION [None]
  - GENERALISED OEDEMA [None]
  - HAEMODIALYSIS [None]
  - MULTI-ORGAN FAILURE [None]
  - PLEURAL EFFUSION [None]
  - SEPTIC SHOCK [None]
  - WHITE BLOOD CELL COUNT INCREASED [None]
